FAERS Safety Report 13732399 (Version 1)
Quarter: 2017Q3

REPORT INFORMATION
  Report Type: Spontaneous
  Country: US (occurrence: US)
  Receive Date: 20170707
  Receipt Date: 20170707
  Transmission Date: 20171127
  Serious: No
  Sender: FDA-Public Use
  Company Number: US-SA-2017SA104484

PATIENT
  Age: 84 Year
  Sex: Female

DRUGS (1)
  1. DUPIXENT [Suspect]
     Active Substance: DUPILUMAB
     Indication: DERMATITIS ATOPIC
     Dosage: FREQUENCY- EVERY OTHER
     Route: 058
     Dates: start: 20170503, end: 20170517

REACTIONS (5)
  - Visual impairment [Recovering/Resolving]
  - Oral herpes [Recovering/Resolving]
  - Joint swelling [Recovering/Resolving]
  - Eye swelling [Recovering/Resolving]
  - Arthralgia [Recovering/Resolving]

NARRATIVE: CASE EVENT DATE: 20170525
